FAERS Safety Report 10652887 (Version 1)
Quarter: 2014Q4

REPORT INFORMATION
  Report Type: Report from Study
  Country: KR (occurrence: KR)
  Receive Date: 20141215
  Receipt Date: 20141215
  Transmission Date: 20150529
  Serious: Yes (Other)
  Sender: FDA-Public Use
  Company Number: KR-MYLANLABS-2014M1013816

PATIENT

DRUGS (6)
  1. DEXAMETHASONE. [Suspect]
     Active Substance: DEXAMETHASONE
     Indication: OFF LABEL USE
  2. ETOPOSIDE. [Suspect]
     Active Substance: ETOPOSIDE
     Indication: OFF LABEL USE
  3. ETOPOSIDE. [Suspect]
     Active Substance: ETOPOSIDE
     Indication: HISTIOCYTOSIS HAEMATOPHAGIC
  4. ETOPOSIDE. [Suspect]
     Active Substance: ETOPOSIDE
     Route: 065
  5. DEXAMETHASONE. [Suspect]
     Active Substance: DEXAMETHASONE
     Indication: HISTIOCYTOSIS HAEMATOPHAGIC
     Route: 065
  6. CICLOSPORIN [Suspect]
     Active Substance: CYCLOSPORINE
     Indication: HISTIOCYTOSIS HAEMATOPHAGIC
     Route: 065

REACTIONS (1)
  - Posterior reversible encephalopathy syndrome [Unknown]
